FAERS Safety Report 7959217-1 (Version None)
Quarter: 2011Q4

REPORT INFORMATION
  Report Type: 
  Country: None (occurrence: None)
  Receive Date: 20111206
  Receipt Date: 20111202
  Transmission Date: 20120403
  Serious: Yes (Other)
  Sender: FDA-Public Use
  Company Number: DE-PFIZER INC-2011294261

PATIENT
  Age: 55 Year
  Sex: Male

DRUGS (4)
  1. VENLAFAXINE HYDROCHLORIDE [Suspect]
     Dosage: 300 MG, 1X/DAY
     Route: 048
     Dates: start: 20110823, end: 20110826
  2. LYRICA [Suspect]
     Dosage: 300 MG, 1X/DAY
     Route: 048
  3. MELPERONE [Suspect]
     Dosage: 75 MG, 1X/DAY
     Route: 048
     Dates: start: 20110811
  4. VENLAFAXINE HYDROCHLORIDE [Suspect]
     Dosage: 225 MG, 1X/DAY
     Route: 048
     Dates: start: 20110601, end: 20110822

REACTIONS (1)
  - NOCTURIA [None]
